FAERS Safety Report 19762641 (Version 2)
Quarter: 2021Q4

REPORT INFORMATION
  Report Type: Spontaneous
  Country: US (occurrence: US)
  Receive Date: 20210828
  Receipt Date: 20211029
  Transmission Date: 20220303
  Serious: Yes (Death, Hospitalization, Other)
  Sender: FDA-Public Use
  Company Number: NVSC2021US192684

PATIENT
  Sex: Male

DRUGS (2)
  1. LABETALOL [Suspect]
     Active Substance: LABETALOL\LABETALOL HYDROCHLORIDE
     Indication: Foetal exposure during pregnancy
     Dosage: MATERNAL DOSE: UNK
     Route: 064
  2. BETAMETHASONE [Suspect]
     Active Substance: BETAMETHASONE
     Indication: Foetal exposure during pregnancy
     Dosage: MATERNAL DOSE: UNK
     Route: 064

REACTIONS (13)
  - Hypoxia [Fatal]
  - Cardiac failure [Fatal]
  - Premature baby [Unknown]
  - Pulmonary hypertension [Unknown]
  - Bradycardia [Unknown]
  - Tricuspid valve incompetence [Unknown]
  - Necrotising colitis [Unknown]
  - Bronchopulmonary dysplasia [Unknown]
  - Foetal growth restriction [Unknown]
  - Ventricular hypertrophy [Unknown]
  - Atrial septal defect [Unknown]
  - Low birth weight baby [Unknown]
  - Foetal exposure during pregnancy [Unknown]
